FAERS Safety Report 11080101 (Version 1)
Quarter: 2015Q2

REPORT INFORMATION
  Report Type: Report from Study
  Country: US (occurrence: US)
  Receive Date: 20150430
  Receipt Date: 20150430
  Transmission Date: 20150821
  Serious: Yes (Life-Threatening, Hospitalization)
  Sender: FDA-Public Use
  Company Number: US-009507513-1504USA023855

PATIENT
  Age: 59 Year
  Sex: Female
  Weight: 96.7 kg

DRUGS (6)
  1. IDARUBICIN HYDROCHLORIDE. [Suspect]
     Active Substance: IDARUBICIN HYDROCHLORIDE
     Dosage: 8 MG/M2, QD OVER 15 MIN (ON DAYS 4-5)
     Route: 042
     Dates: start: 20150330, end: 20150331
  2. VORINOSTAT [Suspect]
     Active Substance: VORINOSTAT
     Indication: ACUTE MYELOID LEUKAEMIA
     Dosage: 500 MG, 3X/DAY, ON DAYS 1-3
     Route: 048
     Dates: start: 20150219, end: 20150221
  3. VORINOSTAT [Suspect]
     Active Substance: VORINOSTAT
     Dosage: 500 MG, 3X/DAY, ON DAYS 1-3,
     Route: 048
     Dates: start: 20150327, end: 20150329
  4. CYTARABINE. [Suspect]
     Active Substance: CYTARABINE
     Dosage: 750 MG/M2, QD (ON DAYS 4-6)
     Route: 042
     Dates: start: 20150330, end: 20150401
  5. CYTARABINE. [Suspect]
     Active Substance: CYTARABINE
     Indication: ACUTE MYELOID LEUKAEMIA
     Dosage: 1500 MG/M2, QD (ON DAYS 4-7)
     Route: 042
     Dates: start: 20150222, end: 20150225
  6. IDARUBICIN HYDROCHLORIDE. [Suspect]
     Active Substance: IDARUBICIN HYDROCHLORIDE
     Indication: ACUTE MYELOID LEUKAEMIA
     Dosage: 12 MG/M2, QD OVER 15 MIN (ON DAYS 4-6)
     Route: 042
     Dates: start: 20150222, end: 20150224

REACTIONS (3)
  - Sepsis [Not Recovered/Not Resolved]
  - Neutropenic colitis [Not Recovered/Not Resolved]
  - White blood cell count decreased [Not Recovered/Not Resolved]

NARRATIVE: CASE EVENT DATE: 20150423
